FAERS Safety Report 9556673 (Version 1)
Quarter: 2013Q3

REPORT INFORMATION
  Report Type: Spontaneous
  Country: US (occurrence: None)
  Receive Date: 20130906
  Receipt Date: 20130906
  Transmission Date: 20140515
  Serious: Yes (Other)
  Sender: FDA-Public Use
  Company Number: 163-POMAL-13053597

PATIENT
  Age: 77 Year
  Sex: Female
  Weight: 60.78 kg

DRUGS (6)
  1. POMALYST [Suspect]
     Indication: PLASMA CELL MYELOMA
     Dosage: 3 MG, 21 IN 28 D, PO
     Route: 048
     Dates: start: 20130329
  2. LANSOPRAZOLE (LANSOPRAZOLE) [Concomitant]
  3. METOPROLOL (METOPROLOL) [Concomitant]
  4. WARFARIN (WARFARIN) [Concomitant]
  5. ENABLEX (DARIFENACIN HYDROBROMIDE) [Concomitant]
  6. DEXAMETHASONE (DEXAMETHASONE) [Concomitant]

REACTIONS (1)
  - Blood count abnormal [None]
